FAERS Safety Report 15570634 (Version 4)
Quarter: 2020Q1

REPORT INFORMATION
  Report Type: Spontaneous
  Country: US (occurrence: US)
  Receive Date: 20181031
  Receipt Date: 20200111
  Transmission Date: 20200409
  Serious: Yes (Hospitalization)
  Sender: FDA-Public Use
  Company Number: US-009507513-1810USA012127

PATIENT
  Sex: Male

DRUGS (15)
  1. PREDNISONE. [Concomitant]
     Active Substance: PREDNISONE
     Dosage: UNK
     Route: 048
  2. FLUVIRIN NOS [Concomitant]
     Active Substance: INFLUENZA VIRUS VACCINE
     Dosage: UNK
     Dates: start: 2014
  3. FLUVIRIN NOS [Concomitant]
     Active Substance: INFLUENZA VIRUS VACCINE
     Dosage: UNK
     Dates: start: 2013
  4. INTRON A [Suspect]
     Active Substance: INTERFERON ALFA-2B
     Indication: REFRACTORY CYTOPENIA WITH UNILINEAGE DYSPLASIA
     Dosage: 3 ML MULTIPLE-DOSE VIALS (MDV), INJECT 4 MILLION UNITS (0.66 ML), 2 TIMES A WEEK; 18MIU
     Route: 058
     Dates: start: 2011
  5. RANITIDINE. [Concomitant]
     Active Substance: RANITIDINE
     Dosage: UNK
     Route: 048
  6. TEMODAR [Concomitant]
     Active Substance: TEMOZOLOMIDE
     Dosage: UNK
  7. CIPROFLOXACIN HYDROCHLORIDE. [Concomitant]
     Active Substance: CIPROFLOXACIN HYDROCHLORIDE
     Dosage: UNK
  8. INTRON A [Suspect]
     Active Substance: INTERFERON ALFA-2B
     Dosage: 3 ML MULTIPLE-DOSE VIALS (MDV), 0.66 MILLILITER, BIW; 18 MIU
     Route: 058
  9. CLONAZEPAM. [Concomitant]
     Active Substance: CLONAZEPAM
     Dosage: UNK
     Route: 048
  10. OMEPRAZOLE. [Concomitant]
     Active Substance: OMEPRAZOLE
     Dosage: UNK
  11. METRONIDAZOLE. [Concomitant]
     Active Substance: METRONIDAZOLE
     Dosage: UNK
  12. INTRON A [Suspect]
     Active Substance: INTERFERON ALFA-2B
     Dosage: 3 ML MULTIPLE-DOSE VIALS (MDV), INJECT 4 MILLION UNITS (0.66 ML), 2 TIMES A WEEK
     Route: 058
  13. ACETAMINOPHEN (+) HYDROCODONE BITARTRATE [Concomitant]
     Active Substance: ACETAMINOPHEN\HYDROCODONE BITARTRATE
     Dosage: UNK
  14. ONDANSETRON [Concomitant]
     Active Substance: ONDANSETRON
     Dosage: UNK
  15. ACETAMINOPHEN (+) OXYCODONE HYDROCHLORIDE [Concomitant]
     Active Substance: ACETAMINOPHEN\OXYCODONE HYDROCHLORIDE

REACTIONS (4)
  - Incorrect dose administered [Unknown]
  - Product dose omission [Unknown]
  - Product use in unapproved indication [Unknown]
  - Palpitations [Unknown]

NARRATIVE: CASE EVENT DATE: 2011
